FAERS Safety Report 17010288 (Version 1)
Quarter: 2019Q4

REPORT INFORMATION
  Report Type: Spontaneous
  Country: US (occurrence: US)
  Receive Date: 20191001
  Receipt Date: 20191001
  Transmission Date: 20200122
  Serious: Yes (Other)
  Sender: FDA-Public Use
  Company Number: None

PATIENT
  Age: 42 Year
  Sex: Female
  Weight: 68.04 kg

DRUGS (1)
  1. MESALAMINE 1.2GRAM TABS [Suspect]
     Active Substance: MESALAMINE
     Indication: COLITIS
     Route: 048
     Dates: start: 201711

REACTIONS (3)
  - Product odour abnormal [None]
  - Abdominal pain upper [None]
  - Arthralgia [None]

NARRATIVE: CASE EVENT DATE: 20190808
